FAERS Safety Report 4431074-X (Version None)
Quarter: 2004Q3

REPORT INFORMATION
  Report Type: 
  Country: None (occurrence: None)
  Receive Date: 20040824
  Receipt Date: 20040811
  Transmission Date: 20050211
  Serious: Yes (Other)
  Sender: FDA-Public Use
  Company Number: PHBS2004NL10609

PATIENT
  Sex: Female

DRUGS (3)
  1. VOLTAREN [Suspect]
     Indication: UTERINE SPASM
     Route: 042
  2. VOLTAREN [Suspect]
     Route: 030
  3. VIOXX [Concomitant]

REACTIONS (4)
  - ABDOMINAL PAIN UPPER [None]
  - MEDICATION ERROR [None]
  - OVERDOSE [None]
  - UTERINE HAEMORRHAGE [None]
